FAERS Safety Report 14860262 (Version 1)
Quarter: 2018Q2

REPORT INFORMATION
  Report Type: Spontaneous
  Country: US (occurrence: US)
  Receive Date: 20180508
  Receipt Date: 20180508
  Transmission Date: 20180711
  Serious: Yes (Hospitalization, Other)
  Sender: FDA-Public Use
  Company Number: US-ZYDUS-019953

PATIENT
  Age: 61 Year
  Sex: Female

DRUGS (1)
  1. TRAMADOL. [Suspect]
     Active Substance: TRAMADOL
     Indication: HEADACHE
     Route: 065

REACTIONS (11)
  - Mania [Recovered/Resolved]
  - Euphoric mood [Recovered/Resolved]
  - Pressure of speech [Recovered/Resolved]
  - Aggression [Recovered/Resolved]
  - Suicidal ideation [Unknown]
  - Insomnia [Recovered/Resolved]
  - Tangentiality [Recovered/Resolved]
  - Inappropriate affect [Recovered/Resolved]
  - Energy increased [Recovered/Resolved]
  - Agitation [Recovered/Resolved]
  - Abnormal dreams [Recovered/Resolved]
